FAERS Safety Report 9324986 (Version 3)
Quarter: 2014Q1

REPORT INFORMATION
  Report Type: Spontaneous
  Country: IT (occurrence: None)
  Receive Date: 20130530
  Receipt Date: 20140225
  Transmission Date: 20141002
  Serious: Yes (Life-Threatening, Hospitalization)
  Sender: FDA-Public Use
  Company Number: 2013MPI00314

PATIENT
  Age: 47 Year
  Sex: Female

DRUGS (5)
  1. ADCETRIS [Suspect]
     Indication: PRODUCT USED FOR UNKNOWN INDICATION
     Route: 042
     Dates: start: 20130315, end: 20130315
  2. ADCETRIS [Suspect]
     Indication: HODGKIN^S DISEASE
     Route: 042
     Dates: start: 20130315, end: 20130315
  3. ANTIDEPRESSANTS [Concomitant]
  4. ANTIBIOTICS [Concomitant]
  5. CORTISONE ACETATE [Concomitant]

REACTIONS (2)
  - Pneumonia [None]
  - Interstitial lung disease [None]
